FAERS Safety Report 12165385 (Version 1)
Quarter: 2016Q1

REPORT INFORMATION
  Report Type: Spontaneous
  Country: US (occurrence: US)
  Receive Date: 20160309
  Receipt Date: 20160309
  Transmission Date: 20160526
  Serious: No
  Sender: FDA-Public Use
  Company Number: US-EMD SERONO-8070791

PATIENT
  Age: 25 Year
  Sex: Female

DRUGS (1)
  1. OVIDREL [Suspect]
     Active Substance: CHORIOGONADOTROPIN ALFA
     Indication: OVULATION DISORDER
     Dosage: INJECT 1 PREFILLED SYRINGE AS DIRECTED.
     Route: 058

REACTIONS (2)
  - Pain [Unknown]
  - Paraesthesia [Unknown]
